FAERS Safety Report 6635113-7 (Version None)
Quarter: 2010Q1

REPORT INFORMATION
  Report Type: 
  Country: None (occurrence: None)
  Receive Date: 20100312
  Receipt Date: 20100312
  Transmission Date: 20100710
  Serious: No
  Sender: FDA-Public Use
  Company Number: None

PATIENT
  Sex: Female
  Weight: 46.7205 kg

DRUGS (1)
  1. DIVALPROEX SODIUM [Suspect]
     Indication: COMPLEX PARTIAL SEIZURES
     Dosage: 500MG TWICE A DAY PO
     Route: 048

REACTIONS (1)
  - CONVULSION [None]
